FAERS Safety Report 16305438 (Version 1)
Quarter: 2019Q2

REPORT INFORMATION
  Report Type: Spontaneous
  Country: US (occurrence: US)
  Receive Date: 20190513
  Receipt Date: 20190513
  Transmission Date: 20190711
  Serious: Yes (Other)
  Sender: FDA-Public Use
  Company Number: US-TEVA-2019-US-1048619

PATIENT
  Sex: Female

DRUGS (1)
  1. TRETINOIN CAPSULES [Suspect]
     Active Substance: TRETINOIN
     Indication: ACUTE PROMYELOCYTIC LEUKAEMIA
     Route: 065

REACTIONS (4)
  - Nausea [Unknown]
  - Visual impairment [Unknown]
  - Vomiting [Unknown]
  - Idiopathic intracranial hypertension [Unknown]
